FAERS Safety Report 6189371-6 (Version None)
Quarter: 2009Q2

REPORT INFORMATION
  Report Type: 
  Country: None (occurrence: None)
  Receive Date: 20090512
  Receipt Date: 20090429
  Transmission Date: 20091009
  Serious: Yes (Other)
  Sender: FDA-Public Use
  Company Number: 234226K09USA

PATIENT
  Age: 55 Year
  Sex: Female
  Weight: 68 kg

DRUGS (7)
  1. REBIF [Suspect]
     Indication: MULTIPLE SCLEROSIS
     Dosage: 44 MCG, 3 IN 1 WEEKS, SUBCUTANEOUS
     Route: 058
     Dates: start: 20050509
  2. PRAVASTATIN [Concomitant]
  3. PROMALIN (HERBAL PREPARATION) [Concomitant]
  4. OPANA [Concomitant]
  5. BACLOFEN [Concomitant]
  6. LISINOPRIL [Concomitant]
  7. HYDROXYCHLOROQUINE SULFATE [Concomitant]

REACTIONS (12)
  - ANOREXIA [None]
  - BLOOD PRESSURE INCREASED [None]
  - FALL [None]
  - FLUID INTAKE REDUCED [None]
  - GAIT DISTURBANCE [None]
  - HEAD INJURY [None]
  - HEART RATE DECREASED [None]
  - HEART VALVE INCOMPETENCE [None]
  - INJECTION SITE REACTION [None]
  - MUSCULAR WEAKNESS [None]
  - PAIN [None]
  - POOR QUALITY SLEEP [None]
